FAERS Safety Report 9593062 (Version 1)
Quarter: 2013Q4

REPORT INFORMATION
  Report Type: Spontaneous
  Country: JP (occurrence: JP)
  Receive Date: 20131004
  Receipt Date: 20131004
  Transmission Date: 20140711
  Serious: Yes (Hospitalization)
  Sender: FDA-Public Use
  Company Number: JP-ASTELLAS-2013JP010268

PATIENT
  Age: 83 Year
  Sex: Female

DRUGS (7)
  1. VESICARE [Suspect]
     Dosage: UNK
     Route: 048
  2. PLAVIX [Concomitant]
     Route: 048
  3. ARICEPT [Concomitant]
     Route: 048
  4. BENECID [Concomitant]
     Route: 048
  5. OPALMON [Concomitant]
     Route: 048
  6. MAGNESIUM OXIDE [Concomitant]
     Route: 048
  7. NAUZELIN [Concomitant]
     Route: 048

REACTIONS (1)
  - Hospitalisation [Unknown]
